FAERS Safety Report 23805572 (Version 1)
Quarter: 2024Q2

REPORT INFORMATION
  Report Type: Spontaneous
  Country: PT (occurrence: PT)
  Receive Date: 20240502
  Receipt Date: 20240502
  Transmission Date: 20240716
  Serious: Yes (Other)
  Sender: FDA-Public Use
  Company Number: None

PATIENT
  Age: 54 Year
  Sex: Male
  Weight: 90 kg

DRUGS (1)
  1. VECTIBIX [Suspect]
     Active Substance: PANITUMUMAB
     Indication: Product used for unknown indication
     Dosage: 20 MG/ML
     Route: 042
     Dates: start: 20240416, end: 20240416

REACTIONS (1)
  - Urticaria papular [Recovered/Resolved]

NARRATIVE: CASE EVENT DATE: 20240416
